FAERS Safety Report 7960889-6 (Version None)
Quarter: 2011Q4

REPORT INFORMATION
  Report Type: 
  Country: None (occurrence: None)
  Receive Date: 20111207
  Receipt Date: 20111130
  Transmission Date: 20120403
  Serious: Yes (Death, Hospitalization)
  Sender: FDA-Public Use
  Company Number: US-AMGEN-USASP2011064062

PATIENT
  Age: 94 Year
  Sex: Male
  Weight: 57.143 kg

DRUGS (1)
  1. PROCRIT [Suspect]
     Indication: ANAEMIA
     Dosage: 40000Q IU, QWK
     Route: 058

REACTIONS (2)
  - HOSPITALISATION [None]
  - DEATH [None]
